FAERS Safety Report 10528072 (Version 3)
Quarter: 2014Q4

REPORT INFORMATION
  Report Type: Spontaneous
  Country: PR (occurrence: US)
  Receive Date: 20141020
  Receipt Date: 20141031
  Transmission Date: 20150528
  Serious: Yes (Death, Hospitalization, Other)
  Sender: FDA-Public Use
  Company Number: US-ACTELION-A-US2014-105981

PATIENT
  Age: 74 Year
  Sex: Female

DRUGS (3)
  1. VELETRI [Suspect]
     Active Substance: EPOPROSTENOL
     Dosage: 10 NG/KG, PER MIN
     Route: 042
  2. LETAIRIS [Suspect]
     Active Substance: AMBRISENTAN
     Indication: PULMONARY HYPERTENSION
     Dosage: 10 MG, QD
     Route: 065
     Dates: start: 20140826
  3. VELETRI [Suspect]
     Active Substance: EPOPROSTENOL
     Indication: PULMONARY ARTERIAL HYPERTENSION
     Dosage: 12 NG/KG, PER MIN
     Route: 042
     Dates: start: 20140918, end: 20141004

REACTIONS (12)
  - Hypotension [Unknown]
  - Pulmonary hypertension [Fatal]
  - Pulmonary oedema [Unknown]
  - Transfusion [Recovering/Resolving]
  - Hypoxia [Unknown]
  - Haematemesis [Unknown]
  - Haemoglobin decreased [Recovering/Resolving]
  - Generalised oedema [Unknown]
  - Vomiting [Unknown]
  - Nausea [Unknown]
  - Pleural effusion [Unknown]
  - Gastrointestinal tract irritation [Unknown]

NARRATIVE: CASE EVENT DATE: 20140918
